FAERS Safety Report 23015603 (Version 1)
Quarter: 2023Q4

REPORT INFORMATION
  Report Type: Spontaneous
  Country: US (occurrence: US)
  Receive Date: 20231002
  Receipt Date: 20231002
  Transmission Date: 20240109
  Serious: Yes (Hospitalization)
  Sender: FDA-Public Use
  Company Number: US-BAYER-2023A134091

PATIENT
  Sex: Female

DRUGS (1)
  1. ALKA-SELTZER HEARTBURN RELIEFCHEWS [Suspect]
     Active Substance: CALCIUM CARBONATE
     Indication: Gastrointestinal disorder
     Dosage: UNK
     Route: 048

REACTIONS (2)
  - Fall [Recovered/Resolved with Sequelae]
  - Dyspepsia [None]

NARRATIVE: CASE EVENT DATE: 20230801
